FAERS Safety Report 4469297-6 (Version None)
Quarter: 2004Q4

REPORT INFORMATION
  Report Type: 
  Country: None (occurrence: None)
  Receive Date: 20041008
  Receipt Date: 20030926
  Transmission Date: 20050328
  Serious: No
  Sender: FDA-Public Use
  Company Number: US-BRISTOL-MYERS SQUIBB COMPANY-12395661

PATIENT
  Age: 72 Year
  Sex: Female
  Weight: 90 kg

DRUGS (3)
  1. AVAPRO [Suspect]
     Indication: HYPERTENSION
     Route: 048
     Dates: start: 20020801
  2. LEVOXYL [Suspect]
  3. ATIVAN [Concomitant]

REACTIONS (3)
  - BLOOD PRESSURE FLUCTUATION [None]
  - HYPOTRICHOSIS [None]
  - TRICHORRHEXIS [None]
